FAERS Safety Report 4951564-0 (Version None)
Quarter: 2006Q1

REPORT INFORMATION
  Report Type: 
  Country: None (occurrence: None)
  Receive Date: 20060323
  Receipt Date: 20060314
  Transmission Date: 20060701
  Serious: Yes (Hospitalization)
  Sender: FDA-Public Use
  Company Number: 2006CG00494

PATIENT
  Age: 80 Year
  Sex: Female

DRUGS (5)
  1. NEXIUM [Suspect]
     Route: 048
     Dates: start: 20051221, end: 20051229
  2. FLECAINIDE ACETATE [Concomitant]
  3. PIASCLEDINE [Concomitant]
  4. GAVISCON [Concomitant]
  5. POLY-KARAYA [Concomitant]

REACTIONS (2)
  - CHOLESTASIS [None]
  - HEPATIC ENZYME INCREASED [None]
